FAERS Safety Report 22225642 (Version 1)
Quarter: 2023Q2

REPORT INFORMATION
  Report Type: Spontaneous
  Country: AT (occurrence: AT)
  Receive Date: 20230418
  Receipt Date: 20230418
  Transmission Date: 20230722
  Serious: Yes (Other)
  Sender: FDA-Public Use
  Company Number: AT-JNJFOC-20230375460

PATIENT
  Sex: Male

DRUGS (3)
  1. DEXAMETHASONE [Suspect]
     Active Substance: DEXAMETHASONE
     Indication: Plasma cell myeloma
     Route: 065
     Dates: start: 202205, end: 202301
  2. VENETOCLAX [Suspect]
     Active Substance: VENETOCLAX
     Indication: Plasma cell myeloma
     Route: 065
     Dates: start: 202205, end: 202301
  3. VELCADE [Suspect]
     Active Substance: BORTEZOMIB
     Indication: Plasma cell myeloma
     Dosage: INJECTION
     Route: 065
     Dates: start: 202205, end: 202301

REACTIONS (4)
  - Deep vein thrombosis [None]
  - Haematoma muscle [None]
  - Plasma cell myeloma recurrent [None]
  - Intentional product use issue [None]

NARRATIVE: CASE EVENT DATE: 20220501
